FAERS Safety Report 7303904-5 (Version None)
Quarter: 2011Q1

REPORT INFORMATION
  Report Type: 
  Country: None (occurrence: None)
  Receive Date: 20110221
  Receipt Date: 20110214
  Transmission Date: 20110831
  Serious: Yes (Other)
  Sender: FDA-Public Use
  Company Number: B0701107A

PATIENT
  Age: 12 Year
  Sex: Female

DRUGS (4)
  1. MOVICOL [Concomitant]
     Indication: INTESTINAL OBSTRUCTION
     Route: 065
  2. VENTOLIN [Concomitant]
     Route: 065
  3. FLIXOTIDE [Suspect]
     Dosage: 125MCG TWICE PER DAY
     Route: 065
  4. PUFFERS [Concomitant]
     Route: 065

REACTIONS (2)
  - OROPHARYNGEAL PAIN [None]
  - SYNCOPE [None]
